FAERS Safety Report 10347073 (Version 1)
Quarter: 2014Q3

REPORT INFORMATION
  Report Type: Spontaneous
  Country: DE (occurrence: DE)
  Receive Date: 20140729
  Receipt Date: 20140729
  Transmission Date: 20150326
  Serious: Yes (Congenital Anomaly, Other)
  Sender: FDA-Public Use
  Company Number: DE-JNJFOC-20140708413

PATIENT
  Age: 0 Year
  Sex: Male
  Weight: 4.15 kg

DRUGS (7)
  1. PREPIDIL [Concomitant]
     Active Substance: DINOPROSTONE
     Indication: LABOUR INDUCTION
     Route: 064
     Dates: start: 20140401, end: 20140401
  2. ATOSIL [Suspect]
     Active Substance: PROMETHAZINE HYDROCHLORIDE
     Indication: BIPOLAR DISORDER
     Route: 064
     Dates: start: 20131010, end: 20140115
  3. SEROQUEL [Suspect]
     Active Substance: QUETIAPINE FUMARATE
     Indication: PSYCHOTIC DISORDER
     Route: 064
     Dates: start: 20131009, end: 20140401
  4. HALOPERIDOL. [Suspect]
     Active Substance: HALOPERIDOL
     Indication: BIPOLAR DISORDER
     Route: 064
     Dates: start: 20131010, end: 20140401
  5. FOLSAN [Concomitant]
     Active Substance: FOLIC ACID
     Indication: PROPHYLAXIS OF NEURAL TUBE DEFECT
     Route: 064
  6. DIAZEPAM. [Suspect]
     Active Substance: DIAZEPAM
     Indication: BIPOLAR DISORDER
     Route: 064
     Dates: start: 20131010, end: 20140215
  7. CASTOR OIL. [Concomitant]
     Active Substance: CASTOR OIL
     Indication: LABOUR INDUCTION
     Route: 064
     Dates: start: 20140401, end: 20140401

REACTIONS (6)
  - Drug withdrawal syndrome neonatal [Recovered/Resolved]
  - Cerebral calcification [Not Recovered/Not Resolved]
  - Hyperhidrosis [Recovered/Resolved]
  - Kidney duplex [Not Recovered/Not Resolved]
  - Foetal exposure during pregnancy [Recovered/Resolved]
  - Restlessness [Recovered/Resolved]

NARRATIVE: CASE EVENT DATE: 20131010
